FAERS Safety Report 23243150 (Version 1)
Quarter: 2023Q4

REPORT INFORMATION
  Report Type: Report from Study
  Country: US (occurrence: US)
  Receive Date: 20231130
  Receipt Date: 20231130
  Transmission Date: 20240110
  Serious: Yes (Hospitalization, Other)
  Sender: FDA-Public Use
  Company Number: US-ALXN-A202213451AA

PATIENT
  Sex: Male

DRUGS (1)
  1. ULTOMIRIS [Suspect]
     Active Substance: RAVULIZUMAB-CWVZ
     Indication: Myasthenia gravis
     Dosage: UNK
     Route: 065

REACTIONS (18)
  - Loss of consciousness [Unknown]
  - Concussion [Unknown]
  - Dehydration [Unknown]
  - Fall [Unknown]
  - Prostate cancer [Unknown]
  - Eye movement disorder [Unknown]
  - Dyspnoea [Unknown]
  - Hyperhidrosis [Recovered/Resolved]
  - Asthma [Unknown]
  - Vision blurred [Unknown]
  - Blood pressure abnormal [Unknown]
  - Panic attack [Unknown]
  - Feeling hot [Recovered/Resolved]
  - Feeling cold [Recovered/Resolved]
  - Dizziness [Recovered/Resolved]
  - Upper respiratory tract infection [Unknown]
  - Chills [Recovered/Resolved]
  - Fatigue [Unknown]

NARRATIVE: CASE EVENT DATE: 20221201
